FAERS Safety Report 8888780 (Version 2)
Quarter: 2012Q4

REPORT INFORMATION
  Report Type: 
  Country: GB (occurrence: GB)
  Receive Date: 20121106
  Receipt Date: 20121121
  Transmission Date: 20130627
  Serious: Yes (Disabling)
  Sender: FDA-Public Use
  Company Number: GB-SANOFI-AVENTIS-2012SA077517

PATIENT
  Age: 46 Year
  Sex: Female

DRUGS (7)
  1. SOLOSTAR [Suspect]
     Indication: DEVICE THERAPY
     Dosage: Dose:11 unit(s)
     Route: 058
     Dates: start: 201209
  2. LANTUS [Suspect]
     Indication: TYPE 2 DIABETES MELLITUS
     Dosage: Dose:11 unit(s)
     Route: 058
     Dates: start: 201209
  3. LANTUS [Suspect]
     Indication: TYPE 2 DIABETES MELLITUS
     Dosage: SINCE 18 MONTHS AGO Dose:11 unit(s)
     Route: 058
     Dates: end: 201209
  4. NEUTRAL [Concomitant]
     Dosage: Dose:8 unit(s)
     Route: 058
  5. TEGRETOL [Concomitant]
     Route: 065
  6. PREGABALIN [Concomitant]
     Route: 065
  7. HMG COA REDUCTASE INHIBITORS [Concomitant]
     Route: 065

REACTIONS (3)
  - Blood ketone body increased [Recovered/Resolved]
  - Malaise [Recovered/Resolved]
  - Dry mouth [Recovered/Resolved]
